FAERS Safety Report 20184682 (Version 1)
Quarter: 2021Q4

REPORT INFORMATION
  Report Type: Spontaneous
  Country: US (occurrence: US)
  Receive Date: 20211214
  Receipt Date: 20211214
  Transmission Date: 20220303
  Serious: Yes (Other)
  Sender: FDA-Public Use
  Company Number: US-ABBVIE-21K-163-4197464-00

PATIENT

DRUGS (1)
  1. DEPAKOTE [Suspect]
     Active Substance: DIVALPROEX SODIUM
     Indication: Chronic lymphocytic leukaemia
     Route: 048

REACTIONS (3)
  - Neoplasm [Unknown]
  - Pseudohyperkalaemia [Unknown]
  - Off label use [Unknown]
